FAERS Safety Report 18148688 (Version 1)
Quarter: 2020Q3

REPORT INFORMATION
  Report Type: Spontaneous
  Country: CA (occurrence: CA)
  Receive Date: 20200814
  Receipt Date: 20200814
  Transmission Date: 20201103
  Serious: Yes (Hospitalization)
  Sender: FDA-Public Use
  Company Number: CA-ROCHE-2658705

PATIENT
  Age: 43 Year
  Sex: Female

DRUGS (2)
  1. OMALIZUMAB. [Suspect]
     Active Substance: OMALIZUMAB
     Indication: CHRONIC SPONTANEOUS URTICARIA
     Route: 058
  2. CLONAZEPAM. [Suspect]
     Active Substance: CLONAZEPAM
     Indication: ANXIETY
     Route: 048

REACTIONS (8)
  - Dyspnoea [Unknown]
  - Middle insomnia [Unknown]
  - Pruritus [Unknown]
  - Urticaria [Unknown]
  - Cardiac infection [Unknown]
  - Malaise [Unknown]
  - Pneumonia [Unknown]
  - Night sweats [Unknown]
